FAERS Safety Report 8475471-4 (Version None)
Quarter: 2012Q2

REPORT INFORMATION
  Report Type: 
  Country: None (occurrence: None)
  Receive Date: 20120628
  Receipt Date: 20120626
  Transmission Date: 20120825
  Serious: No
  Sender: FDA-Public Use
  Company Number: US-PFIZER INC-2012154468

PATIENT
  Sex: Male
  Weight: 100 kg

DRUGS (4)
  1. LYRICA [Suspect]
     Indication: SPINAL FRACTURE
  2. LISINOPRIL [Concomitant]
     Indication: HYPERTENSION
     Dosage: 20 MG, 1X/DAY
  3. LYRICA [Suspect]
     Indication: NERVE INJURY
  4. LYRICA [Suspect]
     Indication: INTERVERTEBRAL DISC PROTRUSION
     Dosage: 100 MG, 3X/DAY
     Route: 048

REACTIONS (2)
  - DIZZINESS [None]
  - MALAISE [None]
